FAERS Safety Report 5077017-X (Version None)
Quarter: 2006Q3

REPORT INFORMATION
  Report Type: 
  Country: None (occurrence: None)
  Receive Date: 20060810
  Receipt Date: 20060608
  Transmission Date: 20061208
  Serious: No
  Sender: FDA-Public Use
  Company Number: US-GLAXOSMITHKLINE-A0608399A

PATIENT
  Age: 43 Year
  Sex: Male

DRUGS (6)
  1. PAROXETINE HCL [Suspect]
     Indication: DEPRESSION
     Dosage: 40MG PER DAY
     Route: 048
     Dates: start: 20060101
  2. HYDROCHLOROTHIAZIDE [Concomitant]
  3. SOMA [Concomitant]
  4. KLONOPIN [Concomitant]
  5. VICODIN [Concomitant]
  6. ANTIHYPERTENSIVE [Concomitant]

REACTIONS (3)
  - AGITATION [None]
  - HOSTILITY [None]
  - SLEEP DISORDER [None]
